FAERS Safety Report 6936829-5 (Version None)
Quarter: 2010Q3

REPORT INFORMATION
  Report Type: 
  Country: None (occurrence: None)
  Receive Date: 20100818
  Receipt Date: 20100803
  Transmission Date: 20110219
  Serious: Yes (Hospitalization)
  Sender: FDA-Public Use
  Company Number: DSA_43645_2010

PATIENT
  Age: 68 Year
  Sex: Male

DRUGS (11)
  1. ENALAPRIL MALEATE [Suspect]
     Indication: HYPERTENSION
     Dosage: (5 MG BID ORAL)
     Route: 048
  2. BISOPROLOL FUMARATE [Suspect]
     Indication: HYPERTENSION
     Dosage: (5 MG BID ORAL)
     Route: 048
  3. FURORESE /00032601/ (FURORESE-FUROSEMIDE) 20 MG (NOT SPECIFIED) [Suspect]
     Indication: HYPERTENSION
     Dosage: (20 MG QD ORAL)
     Route: 048
  4. NITROGLYCERIN [Suspect]
     Indication: CORONARY ARTERY DISEASE
     Dosage: (0.4 MG TID SUBLINGUAL)
     Route: 060
  5. ASPIRIN [Concomitant]
  6. CLEXANE [Concomitant]
  7. FERROUS SULFATE [Concomitant]
  8. INSULIN [Concomitant]
  9. LEVOTHYROXINE SODIUM [Concomitant]
  10. OMEPRAZOLE [Concomitant]
  11. PRAVASTINE NA [Concomitant]

REACTIONS (6)
  - BLOOD GLUCOSE DECREASED [None]
  - CHEST DISCOMFORT [None]
  - DIASTOLIC DYSFUNCTION [None]
  - LEFT ATRIAL DILATATION [None]
  - SYNCOPE [None]
  - TRICUSPID VALVE INCOMPETENCE [None]
